FAERS Safety Report 6377892-2 (Version None)
Quarter: 2009Q3

REPORT INFORMATION
  Report Type: 
  Country: None (occurrence: None)
  Receive Date: 20090925
  Receipt Date: 20090914
  Transmission Date: 20100115
  Serious: Yes (Disabling, Other)
  Sender: FDA-Public Use
  Company Number: PHEH2009US10041

PATIENT
  Sex: Female

DRUGS (2)
  1. RECLAST [Suspect]
     Indication: OSTEOPOROSIS
     Dosage: 5 MG, UNK
     Dates: start: 20090813, end: 20090813
  2. SYNTHROID [Concomitant]
     Indication: HYPOTHYROIDISM
     Dosage: 75 MCG QD
     Route: 048
     Dates: start: 20080701

REACTIONS (7)
  - ASTHENIA [None]
  - BEDRIDDEN [None]
  - BONE PAIN [None]
  - FEELING ABNORMAL [None]
  - MYALGIA [None]
  - THROAT TIGHTNESS [None]
  - URINARY TRACT INFECTION [None]
